FAERS Safety Report 24119084 (Version 1)
Quarter: 2024Q3

REPORT INFORMATION
  Report Type: Other
  Country: GB (occurrence: GB)
  Receive Date: 20240722
  Receipt Date: 20240722
  Transmission Date: 20241017
  Serious: Yes (Other)
  Sender: LUPIN
  Company Number: None

PATIENT

DRUGS (1)
  1. SERTRALINE [Suspect]
     Active Substance: SERTRALINE HYDROCHLORIDE
     Indication: Depression
     Dosage: 50 MG, QD (AT NIGHT)
     Route: 065

REACTIONS (2)
  - Weight increased [Not Recovered/Not Resolved]
  - Gastritis [Not Recovered/Not Resolved]
